FAERS Safety Report 8471285-X (Version None)
Quarter: 2012Q2

REPORT INFORMATION
  Report Type: 
  Country: None (occurrence: None)
  Receive Date: 20120627
  Receipt Date: 20120619
  Transmission Date: 20120825
  Serious: Yes (Hospitalization)
  Sender: FDA-Public Use
  Company Number: US-BAYER-201022655NA

PATIENT
  Age: 37 Year
  Sex: Female
  Weight: 83.447 kg

DRUGS (8)
  1. BETAMETHASONE DIPROPIONATE [Concomitant]
     Dosage: 0.5 %, UNK
     Route: 061
  2. MOBIC [Concomitant]
  3. NSAID'S [Concomitant]
  4. ANTIBIOTICS [Concomitant]
  5. AMITIZA [Concomitant]
     Dosage: 24 MCG 1 UNK, UNK
     Route: 048
     Dates: start: 20080102
  6. YASMIN [Suspect]
     Indication: PREMENSTRUAL SYNDROME
     Dates: start: 20080101, end: 20080201
  7. YASMIN [Suspect]
     Indication: ENDOMETRIOSIS
  8. DARVOCET-N 50 [Concomitant]
     Dosage: 100-650 MG 1
     Route: 048
     Dates: start: 20080102

REACTIONS (2)
  - PULMONARY EMBOLISM [None]
  - PAIN [None]
